FAERS Safety Report 20218353 (Version 2)
Quarter: 2022Q1

REPORT INFORMATION
  Report Type: Report from Study
  Country: US (occurrence: US)
  Receive Date: 20211222
  Receipt Date: 20220113
  Transmission Date: 20220423
  Serious: Yes (Life-Threatening, Hospitalization, Disabling, Other)
  Sender: FDA-Public Use
  Company Number: US-GILEAD-2021-0562337

PATIENT
  Age: 50 Year
  Sex: Male
  Weight: 57.234 kg

DRUGS (5)
  1. EMTRICITABINE\TENOFOVIR [Suspect]
     Active Substance: EMTRICITABINE\TENOFOVIR
     Indication: HIV infection
     Dosage: 1 DOSAGE FORM (200/25 MG, HIGH DOSE), QD
     Route: 048
     Dates: start: 20200803
  2. PREZCOBIX [Concomitant]
     Active Substance: COBICISTAT\DARUNAVIR ETHANOLATE
     Indication: HIV infection
  3. TIVICAY [Concomitant]
     Active Substance: DOLUTEGRAVIR SODIUM
     Indication: HIV infection
  4. AZITHROMYCIN [Concomitant]
     Active Substance: AZITHROMYCIN
  5. SULFADIAZINE [Concomitant]
     Active Substance: SULFADIAZINE

REACTIONS (3)
  - T-lymphocyte count decreased [Unknown]
  - Cerebral toxoplasmosis [Unknown]
  - Illness [Unknown]

NARRATIVE: CASE EVENT DATE: 20200101
